FAERS Safety Report 7054431-4 (Version None)
Quarter: 2010Q4

REPORT INFORMATION
  Report Type: 
  Country: None (occurrence: None)
  Receive Date: 20101020
  Receipt Date: 20101011
  Transmission Date: 20110411
  Serious: Yes (Hospitalization, Other)
  Sender: FDA-Public Use
  Company Number: US-ABBOTT-10P-163-0677374-00

PATIENT
  Sex: Male

DRUGS (8)
  1. DEPAKOTE [Suspect]
     Indication: CONVULSION
  2. BETASERON [Suspect]
     Indication: MULTIPLE SCLEROSIS
     Dosage: 8 MIU
     Route: 058
     Dates: start: 20080519
  3. BETASERON [Suspect]
     Dosage: 8 MIU
     Route: 058
  4. BETASERON [Suspect]
     Dosage: 8 MIU
     Route: 058
     Dates: end: 20100225
  5. BETASERON [Suspect]
     Dosage: 6 MIU
     Route: 058
     Dates: start: 20100320
  6. BETASERON [Suspect]
     Dosage: 8 MIU
     Route: 058
  7. LAMICTAL [Concomitant]
     Indication: PRODUCT USED FOR UNKNOWN INDICATION
     Route: 065
  8. KEPPRA [Concomitant]
     Indication: CONVULSION
     Route: 048

REACTIONS (5)
  - ASTHENIA [None]
  - BALANCE DISORDER [None]
  - FALL [None]
  - HEAD INJURY [None]
  - MUSCULAR WEAKNESS [None]
